FAERS Safety Report 8887480 (Version 1)
Quarter: 2012Q4

REPORT INFORMATION
  Report Type: 
  Country: US (occurrence: US)
  Receive Date: 20121105
  Receipt Date: 20121105
  Transmission Date: 20130627
  Serious: No
  Sender: FDA-Public Use
  Company Number: US-009507513-2011SP046074

PATIENT
  Age: 21 Year
  Sex: Female
  Weight: 121.56 kg

DRUGS (2)
  1. IMPLANON [Suspect]
     Indication: CONTRACEPTION
     Dosage: 1 DF, UNK
     Route: 059
     Dates: start: 201103
  2. IMPLANON [Suspect]
     Dosage: UNK

REACTIONS (3)
  - Medical device complication [Unknown]
  - Blood pressure increased [Unknown]
  - Oedema peripheral [Unknown]
